FAERS Safety Report 16165524 (Version 2)
Quarter: 2019Q2

REPORT INFORMATION
  Report Type: Spontaneous
  Country: US (occurrence: US)
  Receive Date: 20190405
  Receipt Date: 20190524
  Transmission Date: 20190711
  Serious: Yes (Other)
  Sender: FDA-Public Use
  Company Number: US-ASTRAZENECA-2019SE52770

PATIENT
  Age: 19184 Day
  Sex: Male

DRUGS (17)
  1. RISPERIDONE. [Concomitant]
     Active Substance: RISPERIDONE
  2. LISINOPRIL. [Concomitant]
     Active Substance: LISINOPRIL
  3. CLOPIDOGREL [Concomitant]
     Active Substance: CLOPIDOGREL BISULFATE
  4. TRAMADOL. [Concomitant]
     Active Substance: TRAMADOL
  5. AMITRIPTYLINE [Concomitant]
     Active Substance: AMITRIPTYLINE
  6. GLIPIZIDE. [Concomitant]
     Active Substance: GLIPIZIDE
  7. ONGLYZA [Suspect]
     Active Substance: SAXAGLIPTIN HYDROCHLORIDE
     Indication: TYPE 2 DIABETES MELLITUS
     Dosage: 5.0MG UNKNOWN
     Route: 048
     Dates: start: 20140103, end: 201608
  8. LISINOPRIL. [Concomitant]
     Active Substance: LISINOPRIL
  9. TRAZODONE [Concomitant]
     Active Substance: TRAZODONE HYDROCHLORIDE
  10. DIAZEPAM. [Concomitant]
     Active Substance: DIAZEPAM
  11. METOPROLOL TARTRATE. [Concomitant]
     Active Substance: METOPROLOL TARTRATE
  12. ONGLYZA [Suspect]
     Active Substance: SAXAGLIPTIN HYDROCHLORIDE
     Indication: TYPE 2 DIABETES MELLITUS
     Route: 048
     Dates: start: 20130903
  13. PRAVASTATIN. [Concomitant]
     Active Substance: PRAVASTATIN
  14. METFORMIN [Concomitant]
     Active Substance: METFORMIN HYDROCHLORIDE
  15. CARISOPRODOL. [Concomitant]
     Active Substance: CARISOPRODOL
  16. OXYCODONE [Concomitant]
     Active Substance: OXYCODONE
  17. FENTANYL. [Concomitant]
     Active Substance: FENTANYL

REACTIONS (3)
  - Cardiac failure congestive [Unknown]
  - Cardiac disorder [Unknown]
  - Cardiac failure [Unknown]

NARRATIVE: CASE EVENT DATE: 20160303
